FAERS Safety Report 17498046 (Version 1)
Quarter: 2020Q1

REPORT INFORMATION
  Report Type: Spontaneous
  Country: IT (occurrence: IT)
  Receive Date: 20200304
  Receipt Date: 20200304
  Transmission Date: 20200409
  Serious: Yes (Hospitalization)
  Sender: FDA-Public Use
  Company Number: IT-BAYER-2020-033000

PATIENT
  Age: 49 Year
  Sex: Female

DRUGS (1)
  1. KLAIRA [Suspect]
     Active Substance: DIENOGEST\ETHINYL ESTRADIOL
     Route: 048

REACTIONS (2)
  - Mitral valve replacement [Recovering/Resolving]
  - Intracardiac thrombus [Recovering/Resolving]

NARRATIVE: CASE EVENT DATE: 20191220
